FAERS Safety Report 16757517 (Version 1)
Quarter: 2019Q3

REPORT INFORMATION
  Report Type: Spontaneous
  Country: US (occurrence: US)
  Receive Date: 20190830
  Receipt Date: 20190830
  Transmission Date: 20191005
  Serious: No
  Sender: FDA-Public Use
  Company Number: US-JNJFOC-20190832747

PATIENT
  Sex: Female
  Weight: 101.7 kg

DRUGS (1)
  1. MENS ROGAINE EXTRA STRENGTH [Suspect]
     Active Substance: MINOXIDIL
     Indication: ALOPECIA
     Dosage: PATIENT FOLLOWED WHATEVER THE INSTRUCTIONS SAID FOR HOW MUCH PRODUCT TO USE.
     Route: 061

REACTIONS (4)
  - Product use issue [Recovered/Resolved]
  - Application site pain [Recovered/Resolved]
  - Off label use [Unknown]
  - Application site irritation [Recovered/Resolved]
